FAERS Safety Report 14467842 (Version 5)
Quarter: 2019Q3

REPORT INFORMATION
  Report Type: Spontaneous
  Country: FR (occurrence: FR)
  Receive Date: 20180131
  Receipt Date: 20190919
  Transmission Date: 20191004
  Serious: Yes (Hospitalization, Other)
  Sender: FDA-Public Use
  Company Number: FR-MYLANLABS-2018M1005896

PATIENT
  Age: 60 Year
  Sex: Female

DRUGS (8)
  1. DALFAMPRIDINE. [Interacting]
     Active Substance: DALFAMPRIDINE
     Dosage: 10 MILLIGRAM, Q8H (30 MG QD)
     Route: 065
     Dates: start: 2013
  2. OXYBUTYNIN. [Concomitant]
     Active Substance: OXYBUTYNIN CHLORIDE
     Indication: SECONDARY PROGRESSIVE MULTIPLE SCLEROSIS
     Dosage: UNK
     Route: 065
  3. BACLOFEN. [Interacting]
     Active Substance: BACLOFEN
     Dosage: 30 MILLIGRAM (30 MG)
     Route: 065
  4. DALFAMPRIDINE. [Interacting]
     Active Substance: DALFAMPRIDINE
     Dosage: 30 MILLIGRAM, QD (10 MG, TID)
     Route: 065
     Dates: start: 2013
  5. BACLOFEN. [Suspect]
     Active Substance: BACLOFEN
     Indication: SECONDARY PROGRESSIVE MULTIPLE SCLEROSIS
     Dosage: 30 MILLIGRAM, QD
     Route: 065
  6. QIZENDAY [Concomitant]
     Active Substance: BIOTIN
     Indication: MULTIPLE SCLEROSIS
     Dosage: UNK
     Route: 065
  7. BACLOFEN. [Interacting]
     Active Substance: BACLOFEN
     Dosage: 70 MILLIGRAM
     Route: 065
  8. DALFAMPRIDINE. [Interacting]
     Active Substance: DALFAMPRIDINE
     Indication: SECONDARY PROGRESSIVE MULTIPLE SCLEROSIS
     Dosage: 10 MILLIGRAM, Q8H (30 MG QD)
     Route: 065

REACTIONS (4)
  - Drug interaction [Recovering/Resolving]
  - Status epilepticus [Recovering/Resolving]
  - Altered state of consciousness [Unknown]
  - Myoclonus [Unknown]
